FAERS Safety Report 8818563 (Version 2)
Quarter: 2012Q4

REPORT INFORMATION
  Report Type: 
  Country: GB (occurrence: GB)
  Receive Date: 20121001
  Receipt Date: 20121121
  Transmission Date: 20130627
  Serious: Yes (Other)
  Sender: FDA-Public Use
  Company Number: GB-PFIZER INC-2012241108

PATIENT
  Age: 40 Year
  Sex: Female

DRUGS (1)
  1. NICORETTE [Suspect]
     Dosage: UNK
     Route: 065

REACTIONS (1)
  - Breast mass [Unknown]
